FAERS Safety Report 9138048 (Version 1)
Quarter: 2013Q1

REPORT INFORMATION
  Report Type: Spontaneous
  Country: US (occurrence: US)
  Receive Date: 20130304
  Receipt Date: 20130304
  Transmission Date: 20140127
  Serious: Yes (Other)
  Sender: FDA-Public Use
  Company Number: PHHY2013US019874

PATIENT
  Age: 53 Year
  Sex: Female

DRUGS (11)
  1. HYDROXYCHLOROQUINE [Suspect]
     Indication: CUTANEOUS SARCOIDOSIS
     Dosage: 200 MG, BID
  2. PREDNISONE [Suspect]
     Indication: CUTANEOUS SARCOIDOSIS
     Dosage: 10 MG, PER DAY
     Route: 048
  3. PREDNISONE [Suspect]
     Dosage: TAPERED DOSE UNSPECIFIED
     Route: 048
     Dates: end: 201111
  4. METHOTREXATE [Suspect]
     Indication: CUTANEOUS SARCOIDOSIS
     Route: 026
  5. MINOCYCLINE [Suspect]
     Indication: CUTANEOUS SARCOIDOSIS
     Dosage: 7.5 MG, QW
  6. MYCOPHENOLATE MOFETIL [Suspect]
     Indication: CUTANEOUS SARCOIDOSIS
     Dosage: 500 MG, BID
     Dates: start: 200312
  7. MYCOPHENOLATE MOFETIL [Suspect]
     Dosage: 4 G, PER DAY
  8. MYCOPHENOLATE MOFETIL [Suspect]
     Dosage: 1 G, UNK
  9. MYCOPHENOLATE MOFETIL [Suspect]
     Dosage: TAPERED DOSE UNSPECIFIED
     Dates: start: 200710, end: 200805
  10. IMIQUIMOD [Suspect]
     Indication: CUTANEOUS SARCOIDOSIS
  11. TACROLIMUS [Suspect]
     Indication: CUTANEOUS SARCOIDOSIS
     Route: 061

REACTIONS (5)
  - Cutaneous sarcoidosis [Recovering/Resolving]
  - Skin lesion [Recovering/Resolving]
  - Hypertension [Unknown]
  - Diabetes mellitus [Unknown]
  - Osteonecrosis [Unknown]
